FAERS Safety Report 10144466 (Version 2)
Quarter: 2014Q2

REPORT INFORMATION
  Report Type: Spontaneous
  Country: US (occurrence: US)
  Receive Date: 20140430
  Receipt Date: 20140619
  Transmission Date: 20141212
  Serious: No
  Sender: FDA-Public Use
  Company Number: US-GILEAD-2014-0100811

PATIENT
  Age: 64 Year
  Sex: Male

DRUGS (4)
  1. SOVALDI [Suspect]
     Indication: HEPATITIS C
     Dosage: 2 DF, QD
     Route: 048
  2. SOVALDI [Suspect]
     Dosage: 1 DF, QD
     Route: 048
  3. RIBAVIRIN [Concomitant]
     Dosage: UNK
  4. PEGASYS [Concomitant]

REACTIONS (1)
  - Overdose [Recovered/Resolved]
